FAERS Safety Report 5613101-7 (Version None)
Quarter: 2008Q1

REPORT INFORMATION
  Report Type: 
  Country: None (occurrence: None)
  Receive Date: 20080204
  Receipt Date: 20080123
  Transmission Date: 20080703
  Serious: Yes (Hospitalization, Other)
  Sender: FDA-Public Use
  Company Number: US-PFIZER INC-2008008928

PATIENT
  Sex: Female

DRUGS (8)
  1. CHANTIX [Suspect]
     Indication: SMOKING CESSATION THERAPY
     Dates: start: 20070822, end: 20071116
  2. XANAX [Suspect]
     Indication: DEPRESSION
  3. ALBUTEROL [Concomitant]
  4. FLOVENT [Concomitant]
  5. SEROQUEL [Concomitant]
  6. TOFRANIL [Concomitant]
  7. TIAZAC [Concomitant]
  8. OXYGEN [Concomitant]

REACTIONS (4)
  - DEPRESSION [None]
  - KIDNEY INFECTION [None]
  - MUSCULAR WEAKNESS [None]
  - MYALGIA [None]
